FAERS Safety Report 10581546 (Version 2)
Quarter: 2014Q4

REPORT INFORMATION
  Report Type: Spontaneous
  Country: US (occurrence: None)
  Receive Date: 20141110
  Receipt Date: 20141218
  Transmission Date: 20150529
  Serious: Yes (Hospitalization)
  Sender: FDA-Public Use
  Company Number: US-001409

PATIENT
  Age: 58 Year
  Sex: Female

DRUGS (12)
  1. RELISTOR [Concomitant]
     Active Substance: METHYLNALTREXONE BROMIDE
  2. VITAMIN D3 [Concomitant]
     Active Substance: CHOLECALCIFEROL
  3. GATTEX [Suspect]
     Active Substance: TEDUGLUTIDE\WATER
     Indication: SHORT-BOWEL SYNDROME
     Dosage: DF
     Route: 058
     Dates: end: 20141028
  4. ROBINUL [Concomitant]
     Active Substance: GLYCOPYRROLATE
  5. PROTONIX [Concomitant]
     Active Substance: PANTOPRAZOLE SODIUM
  6. OXYCODONE [Concomitant]
     Active Substance: OXYCODONE
  7. EFFEXOR [Concomitant]
     Active Substance: VENLAFAXINE HYDROCHLORIDE
  8. GABAPETIN [Concomitant]
  9. BONIVA [Concomitant]
     Active Substance: IBANDRONATE SODIUM
  10. FOLIC ACID. [Concomitant]
     Active Substance: FOLIC ACID
  11. CODEINE SULFATE. [Concomitant]
     Active Substance: CODEINE SULFATE
  12. SOLUTIONS FOR PARENTERAL NUTRITION [Concomitant]
     Active Substance: AMINO ACIDS\DEXTROSE\ELECTROLYTES NOS

REACTIONS (2)
  - Weight decreased [None]
  - Pulmonary embolism [None]

NARRATIVE: CASE EVENT DATE: 201410
